FAERS Safety Report 18647554 (Version 1)
Quarter: 2020Q4

REPORT INFORMATION
  Report Type: Spontaneous
  Country: US (occurrence: US)
  Receive Date: 20201222
  Receipt Date: 20201222
  Transmission Date: 20210114
  Serious: No
  Sender: FDA-Public Use
  Company Number: US-RECKITT BENCKISER HEALTHCARE INT LIMITED-RB-81322-2020

PATIENT
  Age: 87 Year
  Sex: Female

DRUGS (2)
  1. ROPINIROLE HCL [Suspect]
     Active Substance: ROPINIROLE HYDROCHLORIDE
     Indication: PRODUCT USED FOR UNKNOWN INDICATION
     Dosage: UNK
     Route: 065
  2. DELSYM [Suspect]
     Active Substance: DEXTROMETHORPHAN
     Indication: PRODUCT USED FOR UNKNOWN INDICATION
     Dosage: 2 TABLE SPOON, SINGLE
     Route: 065
     Dates: start: 20191218

REACTIONS (2)
  - Product complaint [Unknown]
  - Expired product administered [Unknown]

NARRATIVE: CASE EVENT DATE: 20191218
